FAERS Safety Report 5289353-2 (Version None)
Quarter: 2007Q2

REPORT INFORMATION
  Report Type: 
  Country: None (occurrence: None)
  Receive Date: 20070406
  Receipt Date: 20070327
  Transmission Date: 20071010
  Serious: Yes (Hospitalization, Other)
  Sender: FDA-Public Use
  Company Number: PHEH2005US07148

PATIENT
  Age: 50 Year
  Sex: Female
  Weight: 74.829 kg

DRUGS (10)
  1. ZOMETA [Suspect]
     Indication: BREAST CANCER METASTATIC
     Dosage: 4 MG EVERY 3 WEEKS
     Dates: start: 20040101, end: 20050623
  2. AREDIA [Suspect]
     Dates: end: 20040101
  3. XELODA [Concomitant]
     Dosage: 3500 MG, UNK
     Route: 048
     Dates: end: 20050301
  4. GEMZAR [Concomitant]
     Dosage: 1700MG QWK
     Dates: start: 20050301
  5. ZOLADEX [Concomitant]
     Indication: BREAST CANCER
     Dosage: 3.6 / QMOS
     Route: 058
     Dates: start: 20050301
  6. DECADRON #1 [Concomitant]
     Dosage: 5 MG, UNK
  7. SYNTHROID [Concomitant]
  8. PROCRIT [Concomitant]
  9. ADVIL [Concomitant]
  10. ALOXI [Concomitant]
     Dosage: 0.25 MG, UNK

REACTIONS (31)
  - ANAEMIA [None]
  - ANXIETY [None]
  - BONE DEBRIDEMENT [None]
  - BONE DISORDER [None]
  - BONE FORMATION INCREASED [None]
  - BONE NEOPLASM MALIGNANT [None]
  - BONE PAIN [None]
  - BONE TRIMMING [None]
  - BREAST CANCER METASTATIC [None]
  - DECREASED INTEREST [None]
  - DEEP VEIN THROMBOSIS [None]
  - DEFORMITY [None]
  - EAR PAIN [None]
  - EMOTIONAL DISTRESS [None]
  - GENERAL PHYSICAL HEALTH DETERIORATION [None]
  - GINGIVAL PAIN [None]
  - HEADACHE [None]
  - HYPOAESTHESIA ORAL [None]
  - IMPAIRED HEALING [None]
  - INFECTION [None]
  - LIFE EXPECTANCY SHORTENED [None]
  - MALIGNANT NEOPLASM PROGRESSION [None]
  - MOUTH ULCERATION [None]
  - ORAL INTAKE REDUCED [None]
  - OSTEOLYSIS [None]
  - OSTEONECROSIS [None]
  - PAIN [None]
  - PALMAR-PLANTAR ERYTHRODYSAESTHESIA SYNDROME [None]
  - SWELLING [None]
  - TOOTH EXTRACTION [None]
  - WISDOM TEETH REMOVAL [None]
